FAERS Safety Report 8498799-0 (Version None)
Quarter: 2012Q3

REPORT INFORMATION
  Report Type: 
  Country: None (occurrence: None)
  Receive Date: 20120709
  Receipt Date: 20120613
  Transmission Date: 20120928
  Serious: Yes (Death, Other)
  Sender: FDA-Public Use
  Company Number: PHHY2011IN90288

PATIENT
  Sex: Male

DRUGS (2)
  1. IMATINIB MESYLATE [Suspect]
     Dosage: 800 MG, UNK
  2. IMATINIB MESYLATE [Suspect]
     Indication: CHRONIC MYELOID LEUKAEMIA
     Dosage: 400 MG, UNK

REACTIONS (3)
  - BLAST CRISIS IN MYELOGENOUS LEUKAEMIA [None]
  - NEOPLASM MALIGNANT [None]
  - CHRONIC MYELOID LEUKAEMIA [None]
